FAERS Safety Report 8133400-7 (Version None)
Quarter: 2012Q1

REPORT INFORMATION
  Report Type: 
  Country: None (occurrence: None)
  Receive Date: 20120213
  Receipt Date: 20120206
  Transmission Date: 20120608
  Serious: Yes (Other)
  Sender: FDA-Public Use
  Company Number: PHHY2012IT010035

PATIENT
  Sex: Female

DRUGS (2)
  1. DELORAZEPAM [Suspect]
  2. TOPIRAMATE [Suspect]

REACTIONS (1)
  - SELF INJURIOUS BEHAVIOUR [None]
